FAERS Safety Report 7543202-8 (Version None)
Quarter: 2011Q2

REPORT INFORMATION
  Report Type: 
  Country: None (occurrence: None)
  Receive Date: 20110613
  Receipt Date: 20110608
  Transmission Date: 20111010
  Serious: Yes (Hospitalization)
  Sender: FDA-Public Use
  Company Number: JP-B.I. PHARMACEUTICALS,INC./RIDGEFIELD-2011-BP-14921NB

PATIENT
  Age: 52 Year
  Sex: Male

DRUGS (6)
  1. ADALAT [Concomitant]
     Dosage: 40 MG
     Route: 048
     Dates: start: 20100218
  2. SUNRYTHM [Concomitant]
     Dosage: 100 MG
     Route: 048
     Dates: start: 20100218
  3. URSO 250 [Concomitant]
     Dosage: 600 MG
     Route: 065
     Dates: start: 20100218
  4. MUCOSTA [Concomitant]
     Dosage: 300 MG
     Route: 048
     Dates: start: 20100218
  5. PRADAXA [Suspect]
     Indication: ATRIAL FIBRILLATION
     Dosage: 300 MG
     Route: 048
     Dates: start: 20110425, end: 20110522
  6. RABEPRAZOLE SODIUM [Concomitant]
     Dosage: 10 MG
     Route: 048
     Dates: start: 20100218

REACTIONS (1)
  - HEPATIC FUNCTION ABNORMAL [None]
